FAERS Safety Report 5777359-6 (Version None)
Quarter: 2008Q2

REPORT INFORMATION
  Report Type: 
  Country: None (occurrence: None)
  Receive Date: 20080618
  Receipt Date: 20080613
  Transmission Date: 20081010
  Serious: Yes (Death, Hospitalization)
  Sender: FDA-Public Use
  Company Number: PHEH2008US04509

PATIENT
  Sex: Female

DRUGS (12)
  1. GLEEVEC [Suspect]
     Indication: GASTROINTESTINAL STROMAL TUMOUR
     Dosage: 400 MG, QD
     Route: 048
     Dates: start: 20070627, end: 20080401
  2. ZOCOR [Concomitant]
  3. ASPIRIN [Concomitant]
     Dosage: 81 MG, UNK
     Route: 048
  4. PRILOSEC [Concomitant]
     Route: 048
  5. TOPROL-XL [Concomitant]
     Dosage: 25 MG, UNK
  6. ARICEPT [Concomitant]
     Dosage: 10 MG, UNK
  7. COZAAR [Concomitant]
     Dosage: 100 MG, UNK
  8. ALLEGRA [Concomitant]
     Dosage: 180 MG, UNK
  9. FERROUS SULFATE TAB [Concomitant]
  10. THIAMINE [Concomitant]
  11. FOLATE SODIUM [Concomitant]
  12. VERAMYST [Concomitant]

REACTIONS (8)
  - ALANINE AMINOTRANSFERASE INCREASED [None]
  - ASPARTATE AMINOTRANSFERASE INCREASED [None]
  - BILIARY DILATATION [None]
  - BLOOD BILIRUBIN INCREASED [None]
  - HEPATIC FAILURE [None]
  - HEPATIC NECROSIS [None]
  - INTERNATIONAL NORMALISED RATIO INCREASED [None]
  - JAUNDICE [None]
